FAERS Safety Report 13793002 (Version 1)
Quarter: 2017Q3

REPORT INFORMATION
  Report Type: Spontaneous
  Country: US (occurrence: US)
  Receive Date: 20170726
  Receipt Date: 20170726
  Transmission Date: 20171127
  Serious: Yes (Hospitalization)
  Sender: FDA-Public Use
  Company Number: None

PATIENT
  Age: 55 Year
  Sex: Male
  Weight: 108.86 kg

DRUGS (14)
  1. GABAPENTIN. [Concomitant]
     Active Substance: GABAPENTIN
  2. PANTOPRAZOLE [Concomitant]
     Active Substance: PANTOPRAZOLE
  3. ALLOPURINOL. [Concomitant]
     Active Substance: ALLOPURINOL
  4. HYDROCHLOROT [Concomitant]
     Active Substance: HYDROCHLOROTHIAZIDE
  5. LISINOPRIL. [Concomitant]
     Active Substance: LISINOPRIL
  6. CETIRIZINE [Concomitant]
     Active Substance: CETIRIZINE HYDROCHLORIDE
  7. MIRTAZAPINE. [Concomitant]
     Active Substance: MIRTAZAPINE
  8. LYRICA [Concomitant]
     Active Substance: PREGABALIN
  9. THIOTHIXINE [Concomitant]
     Active Substance: THIOTHIXENE
  10. PAROXETINE. [Concomitant]
     Active Substance: PAROXETINE
  11. TRAZODONE [Concomitant]
     Active Substance: TRAZODONE HYDROCHLORIDE
  12. LYRICA [Suspect]
     Active Substance: PREGABALIN
     Indication: PERIPHERAL SWELLING
     Route: 048
     Dates: start: 20150801, end: 20170426
  13. LYRICA [Suspect]
     Active Substance: PREGABALIN
     Indication: NEURALGIA
     Route: 048
     Dates: start: 20150801, end: 20170426
  14. SENNA LAXATIVE [Concomitant]
     Active Substance: SENNOSIDES

REACTIONS (12)
  - Insomnia [None]
  - Derealisation [None]
  - Cough [None]
  - Decreased appetite [None]
  - Musculoskeletal stiffness [None]
  - Retching [None]
  - Chills [None]
  - Tremor [None]
  - Pain [None]
  - Rhinorrhoea [None]
  - Withdrawal syndrome [None]
  - Nausea [None]

NARRATIVE: CASE EVENT DATE: 20170526
